FAERS Safety Report 10657613 (Version 2)
Quarter: 2015Q1

REPORT INFORMATION
  Report Type: Spontaneous
  Country: US (occurrence: US)
  Receive Date: 20141217
  Receipt Date: 20150113
  Transmission Date: 20150720
  Serious: No
  Sender: FDA-Public Use
  Company Number: US-PFIZER INC-2014343907

PATIENT
  Age: 65 Year
  Sex: Male

DRUGS (2)
  1. XALKORI [Suspect]
     Active Substance: CRIZOTINIB
     Indication: NON-SMALL CELL LUNG CANCER
     Dosage: 250 MG, 2X/DAY
     Dates: start: 20120612, end: 201411
  2. LYRICA [Concomitant]
     Active Substance: PREGABALIN
     Dosage: UNK

REACTIONS (2)
  - Non-small cell lung cancer [Unknown]
  - Disease progression [Unknown]

NARRATIVE: CASE EVENT DATE: 201411
